FAERS Safety Report 6323662-0 (Version None)
Quarter: 2009Q3

REPORT INFORMATION
  Report Type: 
  Country: None (occurrence: None)
  Receive Date: 20090824
  Receipt Date: 20090307
  Transmission Date: 20100115
  Serious: No
  Sender: FDA-Public Use
  Company Number: US-ABBOTT-09P-163-0565302-00

PATIENT

DRUGS (2)
  1. NIASPAN [Suspect]
     Indication: DYSLIPIDAEMIA
     Dosage: UNKNOWN
     Route: 048
  2. UNKNOWN STATIN (NON-ABBOTT) [Suspect]
     Indication: DYSLIPIDAEMIA
     Dosage: UNKNOWN
     Route: 048

REACTIONS (1)
  - LIPIDS INCREASED [None]
